FAERS Safety Report 5614485-6 (Version None)
Quarter: 2008Q1

REPORT INFORMATION
  Report Type: 
  Country: None (occurrence: None)
  Receive Date: 20080130
  Receipt Date: 20080118
  Transmission Date: 20080703
  Serious: Yes (Hospitalization)
  Sender: FDA-Public Use
  Company Number: 232562K04USA

PATIENT
  Age: 42 Year
  Sex: Female
  Weight: 86.1834 kg

DRUGS (10)
  1. REBIF [Suspect]
     Indication: MULTIPLE SCLEROSIS
     Dosage: 4 MCG, 3 IN 1 WEEKS, SUBCUTANEOUS
     Route: 058
     Dates: start: 20030621
  2. SOLU-MEDROL [Suspect]
     Dates: start: 20040101
  3. PREDNISONE [Suspect]
     Dates: start: 20040101, end: 20040201
  4. LEVOTHYROXINE SODIUM [Concomitant]
  5. CALCIUM /00751501/ [Concomitant]
  6. VITAMIN CAP [Concomitant]
  7. BACLOFEN [Concomitant]
  8. AMANTADINE /00055901/ [Concomitant]
  9. MIRTAZAPINE [Concomitant]
  10. OESTRANORM [Concomitant]

REACTIONS (10)
  - ALOPECIA [None]
  - BLOOD PRESSURE INCREASED [None]
  - BLOOD TRIGLYCERIDES INCREASED [None]
  - DIABETES MELLITUS [None]
  - HEART RATE INCREASED [None]
  - HYPERGLYCAEMIA [None]
  - INFLUENZA LIKE ILLNESS [None]
  - INJECTION SITE REACTION [None]
  - OPTIC NEURITIS [None]
  - WEIGHT DECREASED [None]
